FAERS Safety Report 9189491 (Version 1)
Quarter: 2013Q1

REPORT INFORMATION
  Report Type: Spontaneous
  Country: US (occurrence: None)
  Receive Date: 20130322
  Receipt Date: 20130322
  Transmission Date: 20140127
  Serious: Yes (Hospitalization)
  Sender: FDA-Public Use
  Company Number: None

PATIENT
  Sex: Male
  Weight: 70.31 kg

DRUGS (2)
  1. ADCETRIS [Suspect]
     Indication: ANAPLASTIC LARGE-CELL LYMPHOMA
     Route: 042
     Dates: start: 20130131
  2. ADCETRIS [Suspect]
     Indication: DISEASE RECURRENCE
     Route: 042
     Dates: start: 20130131

REACTIONS (4)
  - Malaise [None]
  - Pulmonary embolism [None]
  - Portal vein thrombosis [None]
  - Deep vein thrombosis [None]
